FAERS Safety Report 19729878 (Version 3)
Quarter: 2021Q3

REPORT INFORMATION
  Report Type: Report from Study
  Country: CN (occurrence: CN)
  Receive Date: 20210820
  Receipt Date: 20210903
  Transmission Date: 20211014
  Serious: Yes (Hospitalization)
  Sender: FDA-Public Use
  Company Number: CN-KARYOPHARM-2021KPT001065

PATIENT
  Age: 53 Year
  Sex: Male

DRUGS (5)
  1. SELINEXOR [Suspect]
     Active Substance: SELINEXOR
     Dosage: 80 MG, WEEKLY
     Route: 048
     Dates: start: 20210824
  2. DEXAMETHASONE. [Concomitant]
     Active Substance: DEXAMETHASONE
     Indication: PLASMA CELL MYELOMA
     Dosage: 40 MG, WEEKLY
     Route: 042
     Dates: start: 20210611, end: 20210721
  3. DOXORUBICIN [Concomitant]
     Active Substance: DOXORUBICIN
     Indication: PLASMA CELL MYELOMA
     Dosage: 25 MG/M2, 1X/4 WEEKS
     Route: 042
     Dates: start: 20210611
  4. SELINEXOR [Suspect]
     Active Substance: SELINEXOR
     Indication: PLASMA CELL MYELOMA
     Dosage: 80 MG, WEEKLY
     Route: 048
     Dates: start: 20210611, end: 20210721
  5. DEXAMETHASONE. [Concomitant]
     Active Substance: DEXAMETHASONE
     Dosage: 40 MG, WEEKLY
     Route: 042
     Dates: start: 20210824

REACTIONS (1)
  - Haemorrhage intracranial [Recovering/Resolving]

NARRATIVE: CASE EVENT DATE: 20210725
